FAERS Safety Report 7462298-5 (Version None)
Quarter: 2011Q2

REPORT INFORMATION
  Report Type: 
  Country: None (occurrence: None)
  Receive Date: 20110506
  Receipt Date: 20110421
  Transmission Date: 20111010
  Serious: Yes (Hospitalization, Other)
  Sender: FDA-Public Use
  Company Number: US-BAYER-2011-014122

PATIENT
  Age: 23 Year
  Sex: Female
  Weight: 59 kg

DRUGS (10)
  1. YASMIN [Suspect]
     Dosage: UNK
     Dates: start: 20050901, end: 20080901
  2. YAZ [Suspect]
     Indication: CONTRACEPTION
     Dosage: UNK
     Route: 048
     Dates: start: 20050901, end: 20080901
  3. ACETAMINOPHEN [Concomitant]
     Dosage: 500 MG, UNK
     Route: 048
  4. PROAIR HFA [Concomitant]
  5. ZYRTEC [Concomitant]
     Dosage: UNK UNK, QD
     Route: 048
  6. LEVOCETIRIZINE DIHYDROCHLORIDE [Concomitant]
     Route: 048
  7. NAPROXEN [Concomitant]
     Route: 048
  8. PROVENTIL [Concomitant]
  9. IBUPROFEN [Concomitant]
     Route: 048
  10. ALBUTEROL [Concomitant]

REACTIONS (2)
  - PAIN [None]
  - PULMONARY EMBOLISM [None]
